FAERS Safety Report 9803407 (Version 1)
Quarter: 2014Q1

REPORT INFORMATION
  Report Type: Spontaneous
  Country: US (occurrence: US)
  Receive Date: 20140108
  Receipt Date: 20140108
  Transmission Date: 20141002
  Serious: Yes (Other)
  Sender: FDA-Public Use
  Company Number: US-SA-2014SA001949

PATIENT
  Age: 67 Year
  Sex: Male

DRUGS (1)
  1. LANTUS [Suspect]
     Indication: DIABETES MELLITUS
     Dosage: FREQUENCY: ONCE OR TWICE A DAY DOSE:50 UNIT(S)
     Route: 058
     Dates: start: 2001

REACTIONS (1)
  - Renal disorder [Not Recovered/Not Resolved]
